FAERS Safety Report 17925630 (Version 1)
Quarter: 2020Q2

REPORT INFORMATION
  Report Type: Report from Study
  Country: None (occurrence: BR)
  Receive Date: 20200623
  Receipt Date: 20200623
  Transmission Date: 20200714
  Serious: Yes (Death, Hospitalization, Other)
  Sender: FDA-Public Use
  Company Number: BR-ABBVIE-20K-020-3453324-00

PATIENT
  Age: 54 Year
  Sex: Male
  Weight: 93 kg

DRUGS (4)
  1. DIAMICRON [Concomitant]
     Active Substance: GLICLAZIDE
     Indication: DIABETES MELLITUS
  2. BENICAR ANLO [Concomitant]
     Active Substance: AMLODIPINE BESYLATE\OLMESARTAN MEDOXOMIL
     Indication: HYPERTENSION
  3. CHLOROQUINE. [Concomitant]
     Active Substance: CHLOROQUINE
     Indication: COVID-19 PROPHYLAXIS
  4. HUMIRA [Suspect]
     Active Substance: ADALIMUMAB
     Indication: PSORIASIS
     Route: 058
     Dates: start: 20151117, end: 202003

REACTIONS (4)
  - Multiple organ dysfunction syndrome [Fatal]
  - Pneumonia bacterial [Fatal]
  - Pneumonia bacterial [Recovered/Resolved]
  - Cardiac arrest [Unknown]

NARRATIVE: CASE EVENT DATE: 2020
